FAERS Safety Report 9562078 (Version 1)
Quarter: 2013Q3

REPORT INFORMATION
  Report Type: Spontaneous
  Country: CO (occurrence: CO)
  Receive Date: 20130927
  Receipt Date: 20130927
  Transmission Date: 20140515
  Serious: Yes (Other)
  Sender: FDA-Public Use
  Company Number: CO-009507513-1309COL013231

PATIENT
  Age: 17 Year
  Sex: Female

DRUGS (1)
  1. NUVARING [Suspect]
     Indication: CONTRACEPTION
     Dosage: DELIVERS 0.120 MG/0.015 MG, QM
     Route: 067
     Dates: start: 20130909, end: 201309

REACTIONS (5)
  - Convulsion [Unknown]
  - Facial paresis [Unknown]
  - Hemiparesis [Unknown]
  - Dysarthria [Unknown]
  - Headache [Unknown]
